FAERS Safety Report 21658703 (Version 2)
Quarter: 2024Q3

REPORT INFORMATION
  Report Type: Report from Study
  Country: BR (occurrence: BR)
  Receive Date: 20221129
  Receipt Date: 20240808
  Transmission Date: 20241016
  Serious: Yes (Other)
  Sender: NOVARTIS
  Company Number: BR-002147023-NVSC2022BR265605

PATIENT
  Age: 55 Year
  Sex: Female

DRUGS (4)
  1. COSENTYX [Suspect]
     Active Substance: SECUKINUMAB
     Indication: Product used for unknown indication
     Dosage: 1 DOSAGE FORM, QMO (INJECTION)
     Route: 065
     Dates: end: 20220820
  2. COSENTYX [Suspect]
     Active Substance: SECUKINUMAB
     Dosage: 1 DOSAGE FORM, QMO (INJECTION)
     Route: 065
     Dates: end: 20220820
  3. COSENTYX [Suspect]
     Active Substance: SECUKINUMAB
     Dosage: 2 DOSAGE FORM, QMO (INJECTION)
     Route: 065
     Dates: start: 20220922
  4. COSENTYX [Suspect]
     Active Substance: SECUKINUMAB
     Dosage: UNK UNK, QMO (TAKING PLACE AROUND THE 20TH DAY OF EACH MONTH)
     Route: 065
     Dates: start: 202407

REACTIONS (11)
  - Ankylosing spondylitis [Unknown]
  - COVID-19 [Recovering/Resolving]
  - Pain [Unknown]
  - Psoriasis [Recovering/Resolving]
  - Alopecia [Unknown]
  - Memory impairment [Unknown]
  - Skin ulcer [Recovering/Resolving]
  - Wound [Recovering/Resolving]
  - Emotional disorder [Unknown]
  - Drug ineffective [Unknown]
  - Stress [Recovering/Resolving]

NARRATIVE: CASE EVENT DATE: 20220601
